FAERS Safety Report 6898689-0 (Version None)
Quarter: 2010Q3

REPORT INFORMATION
  Report Type: 
  Country: None (occurrence: None)
  Receive Date: 20100802
  Receipt Date: 20071114
  Transmission Date: 20110219
  Serious: No
  Sender: FDA-Public Use
  Company Number: US-PFIZER INC-2007096786

PATIENT
  Sex: Female
  Weight: 77.272 kg

DRUGS (7)
  1. LYRICA [Suspect]
     Indication: FIBROMYALGIA
     Route: 048
     Dates: start: 20071025
  2. IRON [Concomitant]
     Indication: GASTRIC HAEMORRHAGE
     Route: 048
  3. SYNTHROID [Concomitant]
     Indication: THYROID DISORDER
     Route: 048
  4. PLAVIX [Concomitant]
     Indication: CEREBROVASCULAR ACCIDENT
     Route: 048
  5. ANTIHYPERTENSIVES [Concomitant]
     Route: 048
  6. CHOLESTEROL- AND TRIGLYCERIDE REDUCERS [Concomitant]
     Route: 048
  7. VITAMINS [Concomitant]
     Route: 048

REACTIONS (1)
  - MEMORY IMPAIRMENT [None]
